FAERS Safety Report 5897577-6 (Version None)
Quarter: 2008Q3

REPORT INFORMATION
  Report Type: 
  Country: None (occurrence: None)
  Receive Date: 20080829
  Receipt Date: 20080618
  Transmission Date: 20090109
  Serious: Yes (Death)
  Sender: FDA-Public Use
  Company Number: PHEH2007US16188

PATIENT
  Age: 76 Year
  Sex: Male
  Weight: 49 kg

DRUGS (21)
  1. EXJADE [Suspect]
     Indication: HAEMOCHROMATOSIS
     Dosage: 1125 MG, QD, ORAL ; 750 MG, QD, ORAL
     Route: 048
     Dates: end: 20071201
  2. EXJADE [Suspect]
     Indication: HAEMOCHROMATOSIS
     Dosage: 1125 MG, QD, ORAL ; 750 MG, QD, ORAL
     Route: 048
     Dates: start: 20060222
  3. ZOMETA [Concomitant]
  4. CATAPRES [Concomitant]
  5. LISINOPRIL [Concomitant]
  6. COREG [Concomitant]
  7. CLONIDINE [Concomitant]
  8. NEXIUM [Concomitant]
  9. ATROVENT (IPRATROPIUM SODIUM) [Concomitant]
  10. ALBUTEROL [Concomitant]
  11. ATIVAN [Concomitant]
  12. TYLENOL PM (DIPHENHYDRAMINE, PARACETAMOL) [Concomitant]
  13. DULCOLAX [Concomitant]
  14. METHADONE HCL [Concomitant]
  15. DILAUDID [Concomitant]
  16. FENTANYL-100 [Concomitant]
  17. LIDODERM [Concomitant]
  18. MAGIC MOUTHWASH (DIPHENHYDRAMINE HYDROCHLORIDE, HYDROCORTISONE, NYSTAT [Concomitant]
  19. PREDNISONE [Concomitant]
  20. SENNA-S (DOCUSATE SODIUM/SENNA ALEXANDRINA) (DOCUSATE SODIUM, SENNA, S [Concomitant]
  21. STOOL SOFTNER (DOCUSATE SODIUM) [Concomitant]

REACTIONS (8)
  - ASTHENIA [None]
  - COUGH [None]
  - DECUBITUS ULCER [None]
  - DIARRHOEA [None]
  - INCREASED BRONCHIAL SECRETION [None]
  - LUNG NEOPLASM MALIGNANT [None]
  - MYELODYSPLASTIC SYNDROME [None]
  - PAIN IN EXTREMITY [None]
